FAERS Safety Report 11089519 (Version 1)
Quarter: 2015Q2

REPORT INFORMATION
  Report Type: Report from Study
  Country: ZA (occurrence: ZA)
  Receive Date: 20150505
  Receipt Date: 20150505
  Transmission Date: 20150821
  Serious: Yes (Other)
  Sender: FDA-Public Use
  Company Number: ZA-CIPLA LTD.-2013ZA00770

PATIENT

DRUGS (3)
  1. INTELENCE [Suspect]
     Active Substance: ETRAVIRINE
     Indication: ANTIVIRAL TREATMENT
     Dosage: 400 MG, SINGLE
     Route: 064
     Dates: start: 20120223
  2. KALETRA [Suspect]
     Active Substance: LOPINAVIR\RITONAVIR
     Indication: ANTIVIRAL TREATMENT
     Dosage: 2 TAB TOTAL DAILY DOSE
     Route: 064
     Dates: start: 20120223
  3. STAVUDINE   FOR ORAL  SOLUTION  1 MG / ML [Suspect]
     Active Substance: STAVUDINE
     Indication: ANTIVIRAL TREATMENT
     Dosage: 60 MG, SINGLE

REACTIONS (4)
  - Maternal exposure during pregnancy [None]
  - Placenta praevia [Unknown]
  - Maternal drugs affecting foetus [None]
  - Abortion spontaneous [Unknown]
